FAERS Safety Report 10406997 (Version 1)
Quarter: 2014Q3

REPORT INFORMATION
  Report Type: Spontaneous
  Country: US (occurrence: None)
  Receive Date: 20140822
  Receipt Date: 20140822
  Transmission Date: 20150326
  Serious: Yes (Disabling)
  Sender: FDA-Public Use
  Company Number: None

PATIENT
  Age: 76 Year
  Sex: Female

DRUGS (8)
  1. MULTIVITAMIN [Concomitant]
     Active Substance: VITAMINS
  2. SYNTHROID [Concomitant]
     Active Substance: LEVOTHYROXINE SODIUM
  3. MINOCYCLINE [Suspect]
     Active Substance: MINOCYCLINE\MINOCYCLINE HYDROCHLORIDE
     Indication: ARTHRITIS
     Dosage: 1 PILL TWICE DAILY BY MOUTH
     Route: 048
     Dates: start: 20130430, end: 20140724
  4. GABAPENTIN. [Concomitant]
     Active Substance: GABAPENTIN
  5. PRESENVISION [Concomitant]
  6. LISINOPRIL. [Concomitant]
     Active Substance: LISINOPRIL
  7. VITAMIN D [Concomitant]
     Active Substance: CHOLECALCIFEROL
  8. OS CAL(CALCIUM) [Concomitant]

REACTIONS (10)
  - Abdominal discomfort [None]
  - Diarrhoea [None]
  - Irritable bowel syndrome [None]
  - Dyspepsia [None]
  - Pain [None]
  - Nausea [None]
  - Tenderness [None]
  - Muscle spasms [None]
  - Weight decreased [None]
  - Faeces pale [None]

NARRATIVE: CASE EVENT DATE: 2013
